FAERS Safety Report 9720926 (Version 1)
Quarter: 2013Q4

REPORT INFORMATION
  Report Type: Report from Study
  Country: US (occurrence: US)
  Receive Date: 20131129
  Receipt Date: 20131129
  Transmission Date: 20140711
  Serious: Yes (Hospitalization)
  Sender: FDA-Public Use
  Company Number: US-BRISTOL-MYERS SQUIBB COMPANY-19858398

PATIENT
  Age: 74 Year
  Sex: Female

DRUGS (22)
  1. DASATINIB [Suspect]
     Indication: CHRONIC MYELOID LEUKAEMIA
     Route: 048
     Dates: start: 20120426, end: 20130628
  2. CEFTRIAXONE [Concomitant]
     Dates: start: 20130628, end: 20130630
  3. DIGOXIN [Concomitant]
     Dates: start: 20130628, end: 20130703
  4. FUROSEMIDE [Concomitant]
     Dates: start: 20130629, end: 20130723
  5. METHOTREXATE [Concomitant]
     Route: 048
  6. PREDNISOLONE [Concomitant]
  7. DIAZEPAM [Concomitant]
  8. ETANERCEPT [Concomitant]
     Dosage: 1 DF:50MG/ML
  9. NABUMETONE [Concomitant]
  10. VITAMIN D [Concomitant]
  11. FOLIC ACID [Concomitant]
  12. HYDROXYETHYL CELLULOSE [Concomitant]
  13. LEVOTHYROXIN [Concomitant]
  14. TRAMADOL [Concomitant]
  15. POTASSIUM CHLORIDE [Concomitant]
  16. ACETYLCYSTEINE [Concomitant]
  17. FLUOXETINE [Concomitant]
  18. PATADAY [Concomitant]
     Dosage: 1 DF: 0.2%
  19. PROCHLORPERAZINE [Concomitant]
     Route: 048
  20. SODIUM CHLORIDE [Concomitant]
  21. ENOXAPARIN [Concomitant]
     Route: 058
  22. OLOPATADINE HCL [Concomitant]

REACTIONS (5)
  - Cardiac failure congestive [Recovered/Resolved]
  - Pleural effusion [Recovered/Resolved]
  - Dyspnoea [Recovered/Resolved]
  - Rheumatoid arthritis [Recovered/Resolved]
  - Cellulitis [Recovered/Resolved]
